FAERS Safety Report 25628371 (Version 2)
Quarter: 2025Q3

REPORT INFORMATION
  Report Type: Report from Study
  Country: US (occurrence: US)
  Receive Date: 20250731
  Receipt Date: 20250816
  Transmission Date: 20251021
  Serious: No
  Sender: UCB
  Company Number: US-UCBSA-2025045483

PATIENT
  Sex: Female

DRUGS (8)
  1. ROTIGOTINE [Suspect]
     Active Substance: ROTIGOTINE
     Indication: Restless legs syndrome
     Dosage: 8 MILLIGRAM, ONCE DAILY (QD)
     Route: 062
  2. SYNTHROID [Concomitant]
     Active Substance: LEVOTHYROXINE SODIUM
     Indication: Thyroid disorder
     Dosage: 150 MICROGRAM, ONCE DAILY (QD)
     Route: 048
     Dates: start: 2005
  3. CLONAZEPAM [Concomitant]
     Active Substance: CLONAZEPAM
     Indication: Seizure
     Dosage: 0.5 MILLIGRAM, 2X/DAY (BID) (MORNING AND NIGHT)
     Route: 048
     Dates: start: 1995
  4. DULOXETINE [Concomitant]
     Active Substance: DULOXETINE
     Indication: Intracranial mass
     Route: 048
     Dates: start: 2005
  5. CRANBERRY CONCENTRATE [ASCORBIC ACID;VACCINIUM MACROCARPON FRUIT] [Concomitant]
     Indication: Illness
     Dosage: 30000 MILLIGRAM, ONCE DAILY (QD)
     Route: 048
  6. VITAMIN D3 [Concomitant]
     Active Substance: CHOLECALCIFEROL
     Indication: Illness
     Dosage: 2000 INTERNATIONAL UNIT, ONCE DAILY (QD)
     Route: 048
  7. SENTRY [Concomitant]
     Indication: Illness
     Dosage: UNK, ONCE DAILY (QD)
     Route: 048
  8. KEPPRA [Concomitant]
     Active Substance: LEVETIRACETAM
     Indication: Seizure
     Dosage: 1000 MILLIGRAM, 2X/DAY (BID)
     Route: 048

REACTIONS (2)
  - Pain [Unknown]
  - Overdose [Unknown]
